FAERS Safety Report 6543182-8 (Version None)
Quarter: 2010Q1

REPORT INFORMATION
  Report Type: 
  Country: None (occurrence: None)
  Receive Date: 20100106
  Receipt Date: 20091228
  Transmission Date: 20100710
  Serious: No
  Sender: FDA-Public Use
  Company Number: 2009-00911

PATIENT
  Age: 58 Year
  Sex: Male
  Weight: 117.9352 kg

DRUGS (3)
  1. COLD REMEDY RAPID MELTS WITH VITAMIN C [Suspect]
     Dosage: Q 3 HRS - 5 DAYS
     Dates: start: 20091219, end: 20091224
  2. LISINOPRIL [Concomitant]
  3. MULTI-VITAMIN [Concomitant]

REACTIONS (2)
  - AGEUSIA [None]
  - ANOSMIA [None]
